FAERS Safety Report 9288488 (Version 2)
Quarter: 2013Q3

REPORT INFORMATION
  Report Type: Spontaneous
  Country: CN (occurrence: CN)
  Receive Date: 20130514
  Receipt Date: 20130712
  Transmission Date: 20140515
  Serious: Yes (Hospitalization)
  Sender: FDA-Public Use
  Company Number: PHHY2013CN046051

PATIENT
  Age: 28 Year
  Sex: Female

DRUGS (1)
  1. PARLODEL [Suspect]
     Indication: BLOOD PROLACTIN INCREASED

REACTIONS (17)
  - Adrenal adenoma [Unknown]
  - Cushing^s syndrome [Unknown]
  - Central obesity [Unknown]
  - Acne [Unknown]
  - Cushingoid [Unknown]
  - Lipohypertrophy [Unknown]
  - Petechiae [Unknown]
  - Skin striae [Unknown]
  - Oedema [Unknown]
  - Renal mass [Unknown]
  - Secondary hypertension [Unknown]
  - Blood pressure fluctuation [Unknown]
  - Hypokalaemia [Recovering/Resolving]
  - Folliculitis [Unknown]
  - Syncope [Unknown]
  - Muscle spasms [Unknown]
  - Maternal exposure during pregnancy [Unknown]
